FAERS Safety Report 23829122 (Version 1)
Quarter: 2024Q2

REPORT INFORMATION
  Report Type: Spontaneous
  Country: US (occurrence: US)
  Receive Date: 20240508
  Receipt Date: 20240508
  Transmission Date: 20240716
  Serious: Yes (Other)
  Sender: FDA-Public Use
  Company Number: US-AMGEN-USASP2024088246

PATIENT

DRUGS (1)
  1. BEVACIZUMAB [Suspect]
     Active Substance: BEVACIZUMAB
     Indication: Respiratory papilloma
     Dosage: 10 MILLIGRAM/KILOGRAM (INFUSION)
     Route: 065

REACTIONS (5)
  - Acute kidney injury [Recovered/Resolved]
  - Upper respiratory tract infection [Unknown]
  - Proteinuria [Unknown]
  - Epistaxis [Unknown]
  - Off label use [Unknown]
